FAERS Safety Report 11753608 (Version 1)
Quarter: 2015Q4

REPORT INFORMATION
  Report Type: Report from Study
  Country: GR (occurrence: GR)
  Receive Date: 20151119
  Receipt Date: 20151119
  Transmission Date: 20160304
  Serious: Yes (Hospitalization, Other)
  Sender: FDA-Public Use
  Company Number: PHHY2015GR146771

PATIENT
  Age: 83 Year
  Sex: Female
  Weight: 63 kg

DRUGS (2)
  1. AFINITOR [Suspect]
     Active Substance: EVEROLIMUS
     Indication: RENAL CANCER METASTATIC
     Dosage: 10 MG, UNK
     Route: 065
  2. AFINITOR [Suspect]
     Active Substance: EVEROLIMUS
     Dosage: 5 MG, UNK
     Route: 065

REACTIONS (8)
  - Acute coronary syndrome [Unknown]
  - Troponin increased [Unknown]
  - Stomatitis [Unknown]
  - Dyslipidaemia [Unknown]
  - Malignant neoplasm progression [Unknown]
  - Diarrhoea [Unknown]
  - Albuminuria [Unknown]
  - Conjunctivitis [Unknown]
